FAERS Safety Report 7214937-1 (Version None)
Quarter: 2011Q1

REPORT INFORMATION
  Report Type: 
  Country: None (occurrence: None)
  Receive Date: 20110107
  Receipt Date: 20100525
  Transmission Date: 20110831
  Serious: No
  Sender: FDA-Public Use
  Company Number: A0861239A

PATIENT
  Age: 73 Year
  Sex: Male

DRUGS (10)
  1. ATENOLOL [Concomitant]
  2. COMBIVENT [Concomitant]
  3. ZANTAC [Concomitant]
  4. LOVAZA [Suspect]
     Dosage: 4CAP PER DAY
     Route: 048
     Dates: start: 20090101
  5. PLAVIX [Concomitant]
  6. SIMVASTATIN [Concomitant]
  7. ALTACE [Concomitant]
  8. ADVAIR [Concomitant]
  9. PRANDIN [Concomitant]
  10. ASPIRIN [Concomitant]

REACTIONS (2)
  - COUGH [None]
  - DYSPHAGIA [None]
